FAERS Safety Report 6228282-4 (Version None)
Quarter: 2009Q2

REPORT INFORMATION
  Report Type: 
  Country: None (occurrence: None)
  Receive Date: 20090612
  Receipt Date: 20090604
  Transmission Date: 20091009
  Serious: Yes (Hospitalization)
  Sender: FDA-Public Use
  Company Number: PHHO2009DE05879

PATIENT
  Sex: Female

DRUGS (4)
  1. RAD 666 RAD+TAB [Suspect]
     Indication: LIVER TRANSPLANT
     Dosage: 8MG
     Route: 048
     Dates: start: 20090310
  2. SIMULECT [Suspect]
     Route: 042
  3. PROGRAF [Concomitant]
     Indication: PROPHYLAXIS AGAINST TRANSPLANT REJECTION
  4. DECORTIN [Concomitant]
     Dosage: UNK

REACTIONS (5)
  - DISEASE RECURRENCE [None]
  - HEPATIC ENZYME INCREASED [None]
  - HEPATIC STEATOSIS [None]
  - HEPATITIS C [None]
  - TRANSAMINASES INCREASED [None]
